FAERS Safety Report 18844992 (Version 2)
Quarter: 2021Q1

REPORT INFORMATION
  Report Type: Spontaneous
  Country: US (occurrence: US)
  Receive Date: 20210204
  Receipt Date: 20210210
  Transmission Date: 20210419
  Serious: No
  Sender: FDA-Public Use
  Company Number: US-ELI_LILLY_AND_COMPANY-US202102001118

PATIENT
  Age: 59 Year
  Sex: Female

DRUGS (1)
  1. EMGALITY [Suspect]
     Active Substance: GALCANEZUMAB-GNLM
     Indication: MIGRAINE
     Dosage: 120 MG, UNKNOWN
     Route: 058
     Dates: start: 20210123

REACTIONS (8)
  - Peripheral swelling [Recovering/Resolving]
  - Joint swelling [Unknown]
  - Underdose [Unknown]
  - Nausea [Not Recovered/Not Resolved]
  - Pain in extremity [Unknown]
  - Weight increased [Unknown]
  - Fluid retention [Unknown]
  - Headache [Not Recovered/Not Resolved]

NARRATIVE: CASE EVENT DATE: 20210123
